FAERS Safety Report 10258926 (Version 1)
Quarter: 2014Q2

REPORT INFORMATION
  Report Type: Spontaneous
  Country: US (occurrence: US)
  Receive Date: 20140625
  Receipt Date: 20140625
  Transmission Date: 20141212
  Serious: No
  Sender: FDA-Public Use
  Company Number: US-ASTELLAS-2013US008892

PATIENT
  Age: 63 Year
  Sex: Female

DRUGS (2)
  1. VESICARE [Suspect]
     Indication: CYSTITIS INTERSTITIAL
     Route: 048
  2. VESICARE [Suspect]
     Indication: HYPERTONIC BLADDER

REACTIONS (2)
  - Drug ineffective for unapproved indication [Unknown]
  - Drug ineffective [Unknown]
